FAERS Safety Report 22209561 (Version 1)
Quarter: 2023Q2

REPORT INFORMATION
  Report Type: Report from Study
  Country: US (occurrence: US)
  Receive Date: 20230414
  Receipt Date: 20230414
  Transmission Date: 20230722
  Serious: No
  Sender: FDA-Public Use
  Company Number: US-BIOVITRUM-2023-US-008322

PATIENT
  Age: 5 Year
  Sex: Male

DRUGS (1)
  1. KINERET [Suspect]
     Active Substance: ANAKINRA
     Indication: Product used for unknown indication
     Dosage: DAILY
     Route: 058
     Dates: start: 20230321

REACTIONS (4)
  - Rash [Unknown]
  - Injection site pain [Unknown]
  - Pyrexia [Unknown]
  - Off label use [Unknown]
